FAERS Safety Report 8594326-8 (Version None)
Quarter: 2012Q3

REPORT INFORMATION
  Report Type: 
  Country: None (occurrence: None)
  Receive Date: 20120815
  Receipt Date: 20120807
  Transmission Date: 20120928
  Serious: No
  Sender: FDA-Public Use
  Company Number: US-BIOGENIDEC-2012BI028563

PATIENT
  Age: 61 Year
  Sex: Female

DRUGS (4)
  1. TYSABRI [Suspect]
     Indication: MULTIPLE SCLEROSIS
     Route: 042
     Dates: start: 20050107
  2. AVONEX [Concomitant]
     Indication: MULTIPLE SCLEROSIS
     Route: 030
     Dates: start: 20030101
  3. TYSABRI [Suspect]
     Route: 042
     Dates: start: 20080214, end: 20080214
  4. TYSABRI [Suspect]
     Route: 042
     Dates: start: 20120509

REACTIONS (5)
  - FLUSHING [None]
  - DIZZINESS [None]
  - NAUSEA [None]
  - ADVERSE DRUG REACTION [None]
  - DRUG SPECIFIC ANTIBODY PRESENT [None]
